FAERS Safety Report 8163408-7 (Version None)
Quarter: 2012Q1

REPORT INFORMATION
  Report Type: 
  Country: None (occurrence: None)
  Receive Date: 20120224
  Receipt Date: 20120216
  Transmission Date: 20120608
  Serious: Yes (Other)
  Sender: FDA-Public Use
  Company Number: US-US-EMD SERONO, INC.-7111723

PATIENT
  Sex: Female

DRUGS (2)
  1. REBIF [Suspect]
     Indication: MULTIPLE SCLEROSIS
     Dates: start: 20111001, end: 20120126
  2. NEURONTIN [Concomitant]
     Indication: PAIN
     Dates: start: 20110929

REACTIONS (3)
  - DEPRESSION [None]
  - MOOD ALTERED [None]
  - HOMICIDAL IDEATION [None]
